FAERS Safety Report 12354882 (Version 1)
Quarter: 2016Q2

REPORT INFORMATION
  Report Type: Spontaneous
  Country: US (occurrence: None)
  Receive Date: 20160510
  Receipt Date: 20160510
  Transmission Date: 20160815
  Serious: No
  Sender: FDA-Public Use
  Company Number: None

PATIENT
  Age: 44 Year
  Sex: Male
  Weight: 86.18 kg

DRUGS (1)
  1. DOXYCYCLINE MONOHYDRATE [Suspect]
     Active Substance: DOXYCYCLINE

REACTIONS (4)
  - Photosensitivity reaction [None]
  - Headache [None]
  - Vision blurred [None]
  - Eyelid oedema [None]

NARRATIVE: CASE EVENT DATE: 20160508
